FAERS Safety Report 7385836-X (Version None)
Quarter: 2011Q1

REPORT INFORMATION
  Report Type: 
  Country: None (occurrence: None)
  Receive Date: 20110331
  Receipt Date: 20110329
  Transmission Date: 20110831
  Serious: Yes (Other)
  Sender: FDA-Public Use
  Company Number: US-PFIZER INC-HQWYE754001SEP04

PATIENT
  Sex: Female
  Weight: 82 kg

DRUGS (4)
  1. DITROPAN [Concomitant]
     Indication: INCONTINENCE
     Dosage: UNK
     Dates: start: 20000101, end: 20040101
  2. LIPITOR [Concomitant]
     Indication: BLOOD CHOLESTEROL INCREASED
     Dosage: UNK
     Dates: start: 19970101
  3. PREMPRO [Suspect]
     Indication: HORMONE REPLACEMENT THERAPY
     Dosage: 0.625/2.5MG, UNK
     Route: 048
     Dates: start: 19970710, end: 20001117
  4. ACETYLSALICYLIC ACID [Concomitant]
     Dosage: UNK

REACTIONS (1)
  - BREAST CANCER FEMALE [None]
